FAERS Safety Report 5827759-0 (Version None)
Quarter: 2008Q3

REPORT INFORMATION
  Report Type: 
  Country: None (occurrence: None)
  Receive Date: 20080730
  Receipt Date: 20080718
  Transmission Date: 20090109
  Serious: Yes (Other)
  Sender: FDA-Public Use
  Company Number: US-PFIZER INC-2008061117

PATIENT
  Sex: Female

DRUGS (2)
  1. XANAX [Suspect]
  2. ALPRAZOLAM [Suspect]

REACTIONS (3)
  - CEREBROVASCULAR ACCIDENT [None]
  - DRUG DEPENDENCE [None]
  - REACTION TO DRUG EXCIPIENTS [None]
